FAERS Safety Report 13650269 (Version 1)
Quarter: 2017Q2

REPORT INFORMATION
  Report Type: Spontaneous
  Country: US (occurrence: US)
  Receive Date: 20170614
  Receipt Date: 20170614
  Transmission Date: 20170830
  Serious: No
  Sender: FDA-Public Use
  Company Number: US-ENDO PHARMACEUTICALS INC-2016-006547

PATIENT
  Age: 30 Year
  Sex: Female
  Weight: 76.19 kg

DRUGS (2)
  1. GILDESS FE TABLETS [Suspect]
     Active Substance: ETHINYL ESTRADIOL\NORETHINDRONE ACETATE
     Indication: CONTRACEPTION
     Dosage: 1 TABLET BY MOUTH AT BEDTIME
     Route: 048
     Dates: start: 2016, end: 201610
  2. GILDESS FE TABLETS [Suspect]
     Active Substance: ETHINYL ESTRADIOL\NORETHINDRONE ACETATE
     Indication: MENSTRUATION IRREGULAR

REACTIONS (2)
  - Pain [Not Recovered/Not Resolved]
  - Metrorrhagia [Not Recovered/Not Resolved]

NARRATIVE: CASE EVENT DATE: 20161023
